FAERS Safety Report 4344541-4 (Version None)
Quarter: 2004Q2

REPORT INFORMATION
  Report Type: 
  Country: None (occurrence: None)
  Receive Date: 20040422
  Receipt Date: 20040413
  Transmission Date: 20050107
  Serious: Yes (Disabling)
  Sender: FDA-Public Use
  Company Number: DK-MERCK-0404DNK00012

PATIENT
  Age: 58 Year
  Sex: Female
  Weight: 65 kg

DRUGS (1)
  1. ZOCOR [Suspect]
     Indication: HYPERCHOLESTEROLAEMIA
     Route: 048
     Dates: end: 20020810

REACTIONS (3)
  - ARTHRALGIA [None]
  - CARDIAC FAILURE [None]
  - MYOPATHY [None]
